FAERS Safety Report 8525889 (Version 6)
Quarter: 2012Q4

REPORT INFORMATION
  Report Type: Report from Study
  Country: CA (occurrence: CA)
  Receive Date: 20120423
  Receipt Date: 20120928
  Transmission Date: 20130627
  Serious: Yes (Other)
  Sender: FDA-Public Use
  Company Number: CA-ROCHE-1060381

PATIENT
  Age: 53 None
  Sex: Male
  Weight: 119.7 kg

DRUGS (12)
  1. AVASTIN [Suspect]
     Indication: COLORECTAL CANCER
     Route: 042
     Dates: start: 20110518, end: 20120503
  2. AVASTIN [Suspect]
     Route: 042
     Dates: start: 20120503, end: 20120802
  3. AVASTIN [Suspect]
     Route: 042
     Dates: start: 20110318
  4. PANTOPRAZOLE [Concomitant]
  5. GAVISCON ACID [Concomitant]
  6. IMODIUM [Concomitant]
     Route: 065
  7. STEMETIL [Concomitant]
     Route: 065
  8. INSULIN [Concomitant]
  9. DEXAMETHASON [Concomitant]
     Route: 065
     Dates: start: 201202, end: 20120301
  10. METFORMIN [Concomitant]
  11. HUMALOG [Concomitant]
  12. HUMULIN [Concomitant]

REACTIONS (18)
  - Disease progression [Not Recovered/Not Resolved]
  - Drug ineffective [Unknown]
  - Type 1 diabetes mellitus [Not Recovered/Not Resolved]
  - Thirst [Recovered/Resolved]
  - Pollakiuria [Recovered/Resolved]
  - Red blood cell count decreased [Unknown]
  - Lymphocyte count decreased [Unknown]
  - Blood sodium decreased [Unknown]
  - Aspartate aminotransferase increased [Unknown]
  - Blood lactate dehydrogenase increased [Unknown]
  - Gamma-glutamyltransferase increased [Unknown]
  - Carbohydrate antigen 19-9 increased [Unknown]
  - Red cell distribution width increased [Unknown]
  - Carcinoembryonic antigen increased [Unknown]
  - Dry mouth [Unknown]
  - Oropharyngeal pain [Unknown]
  - Cough [Unknown]
  - Epistaxis [Not Recovered/Not Resolved]
